FAERS Safety Report 14298949 (Version 1)
Quarter: 2017Q4

REPORT INFORMATION
  Report Type: Spontaneous
  Country: US (occurrence: US)
  Receive Date: 20171216
  Receipt Date: 20171216
  Transmission Date: 20180321
  Serious: Yes (Death, Life-Threatening, Hospitalization, Disabling)
  Sender: FDA-Public Use
  Company Number: None

PATIENT
  Sex: Female
  Weight: 83.25 kg

DRUGS (1)
  1. 2.5 MG/0.025 MG TABLETSDIPHENOXYLATE HYDROCHLORIDE AND ATROPINE SULFAT [Suspect]
     Active Substance: ATROPINE SULFATE\DIPHENOXYLATE HYDROCHLORIDE
     Indication: DIARRHOEA
     Dosage: ?          QUANTITY:2 TABLET(S);?
     Route: 048
     Dates: start: 20170809, end: 20170909

REACTIONS (5)
  - Confusional state [None]
  - Dehydration [None]
  - Vomiting [None]
  - General physical health deterioration [None]
  - Hypophagia [None]

NARRATIVE: CASE EVENT DATE: 20170809
